FAERS Safety Report 19010810 (Version 1)
Quarter: 2021Q1

REPORT INFORMATION
  Report Type: Spontaneous
  Country: FR (occurrence: FR)
  Receive Date: 20210316
  Receipt Date: 20210316
  Transmission Date: 20210420
  Serious: Yes (Hospitalization)
  Sender: FDA-Public Use
  Company Number: FR-TEVA-2021-FR-1889456

PATIENT
  Age: 71 Year
  Sex: Male
  Weight: 108.1 kg

DRUGS (15)
  1. INNOHEP [Suspect]
     Active Substance: TINZAPARIN SODIUM
     Dosage: 18000 IU
     Route: 058
     Dates: start: 20210112, end: 20210113
  2. DIAZEPAM. [Suspect]
     Active Substance: DIAZEPAM
     Route: 065
  3. LERCANIDIPINE (CHLORHYDRATE DE) [Concomitant]
     Active Substance: LERCANIDIPINE HYDROCHLORIDE
  4. TAMSULOSINE [Concomitant]
     Active Substance: TAMSULOSIN HYDROCHLORIDE
  5. ECONAZOLE. [Suspect]
     Active Substance: ECONAZOLE NITRATE
     Route: 065
  6. LANSOYL [Concomitant]
     Active Substance: MINERAL OIL
  7. FLECAINE [Concomitant]
     Active Substance: FLECAINIDE
  8. OXYCODONE [Concomitant]
     Active Substance: OXYCODONE
  9. VANCOMYCINE [Concomitant]
     Active Substance: VANCOMYCIN
  10. MOVENTIG 12,5 MG, COMPRIME PELLICULE [Concomitant]
  11. PRIMPERAN [Concomitant]
     Active Substance: METOCLOPRAMIDE HYDROCHLORIDE
  12. LEVOTHYROXINE SODIQUE [Concomitant]
     Active Substance: LEVOTHYROXINE SODIUM
  13. INNOHEP [Suspect]
     Active Substance: TINZAPARIN SODIUM
     Indication: PULMONARY EMBOLISM
     Dosage: 19000 IU
     Route: 058
     Dates: start: 20210114, end: 20210117
  14. STILNOX [Concomitant]
     Active Substance: ZOLPIDEM TARTRATE
  15. FINASTERIDE. [Concomitant]
     Active Substance: FINASTERIDE

REACTIONS (3)
  - Heparin-induced thrombocytopenia test positive [Not Recovered/Not Resolved]
  - Heparin-induced thrombocytopenia [Recovered/Resolved]
  - Heparin-induced thrombocytopenia test positive [Not Recovered/Not Resolved]

NARRATIVE: CASE EVENT DATE: 20210113
